FAERS Safety Report 4471495-2 (Version None)
Quarter: 2004Q4

REPORT INFORMATION
  Report Type: 
  Country: None (occurrence: None)
  Receive Date: 20041008
  Receipt Date: 20041008
  Transmission Date: 20050328
  Serious: Yes (Hospitalization)
  Sender: FDA-Public Use
  Company Number: None

PATIENT
  Age: 67 Year
  Sex: Male
  Weight: 95.2554 kg

DRUGS (9)
  1. GEMZAR [Suspect]
     Indication: NON-SMALL CELL LUNG CANCER STAGE III
     Dosage: 1340 MG WEEKLY INTRAVENOU
     Route: 042
     Dates: start: 20040412, end: 20040707
  2. CARBOPLATIN [Suspect]
     Dosage: 255.9MG WEEKLY INTRAVENOU
     Route: 042
     Dates: start: 20040412, end: 20040707
  3. GUINIDINE [Concomitant]
  4. LISINOPRIL [Concomitant]
  5. LANOXIN [Concomitant]
  6. LASIX [Concomitant]
  7. PROTONIX [Concomitant]
  8. LOPRESSOR [Concomitant]
  9. ZOCOR [Concomitant]

REACTIONS (6)
  - DEHYDRATION [None]
  - DYSPNOEA [None]
  - MARKEDLY REDUCED DIETARY INTAKE [None]
  - ORTHOSTATIC HYPOTENSION [None]
  - PRODUCTIVE COUGH [None]
  - SYNCOPE [None]
